FAERS Safety Report 9059232 (Version 4)
Quarter: 2013Q3

REPORT INFORMATION
  Report Type: Report from Study
  Country: BR (occurrence: BR)
  Receive Date: 20130211
  Receipt Date: 20130809
  Transmission Date: 20140515
  Serious: Yes (Disabling, Other)
  Sender: FDA-Public Use
  Company Number: BR-ROCHE-1162216

PATIENT
  Sex: Female
  Weight: 60 kg

DRUGS (6)
  1. ACTEMRA [Suspect]
     Indication: RHEUMATOID ARTHRITIS
     Route: 065
     Dates: start: 20100106, end: 20120131
  2. ACTEMRA [Suspect]
     Dosage: LAST INFUSION: 04/FEB/2013
     Route: 065
     Dates: start: 20121207, end: 201303
  3. METHOTREXATE [Concomitant]
     Indication: RHEUMATOID ARTHRITIS
  4. ARAVA [Concomitant]
  5. PREDNISONE [Concomitant]
     Indication: RHEUMATOID ARTHRITIS
  6. FOLIC ACID [Concomitant]
     Indication: RHEUMATOID ARTHRITIS

REACTIONS (13)
  - Arthralgia [Not Recovered/Not Resolved]
  - Joint swelling [Recovered/Resolved]
  - Joint swelling [Recovered/Resolved]
  - Joint swelling [Recovered/Resolved]
  - Local swelling [Recovered/Resolved]
  - Pain [Recovered/Resolved]
  - Rheumatic fever [Recovered/Resolved]
  - Dysstasia [Not Recovered/Not Resolved]
  - Malaise [Recovered/Resolved]
  - Laboratory test abnormal [Recovered/Resolved]
  - Cardiovascular disorder [Recovered/Resolved]
  - Rheumatoid arthritis [Recovered/Resolved]
  - Cerebrovascular accident [Recovered/Resolved]
